FAERS Safety Report 16709923 (Version 2)
Quarter: 2019Q3

REPORT INFORMATION
  Report Type: Spontaneous
  Country: US (occurrence: US)
  Receive Date: 20190816
  Receipt Date: 20190820
  Transmission Date: 20191004
  Serious: Yes (Other)
  Sender: FDA-Public Use
  Company Number: US-PFIZER INC-2019348168

PATIENT
  Age: 52 Year
  Sex: Female

DRUGS (1)
  1. EUCRISA [Suspect]
     Active Substance: CRISABOROLE
     Indication: ECZEMA
     Dosage: UNK, 2X/DAY (FOR A WEEK STRAIGHT)
     Dates: start: 201903, end: 201907

REACTIONS (9)
  - Rash erythematous [Unknown]
  - Gait disturbance [Unknown]
  - Swelling face [Unknown]
  - Burning sensation [Unknown]
  - Swelling of eyelid [Unknown]
  - Lip swelling [Unknown]
  - Drug hypersensitivity [Unknown]
  - Drug ineffective [Unknown]
  - Peripheral swelling [Unknown]

NARRATIVE: CASE EVENT DATE: 201903
